FAERS Safety Report 6766572 (Version 2)
Quarter: 2020Q3

REPORT INFORMATION
  Report Type: Report from Study
  Country: US (occurrence: US)
  Receive Date: 20080923
  Receipt Date: 20081009
  Transmission Date: 20201105
  Serious: Yes (Hospitalization)
  Sender: FDA-Public Use
  Company Number: US-ROCHE-586359

PATIENT
  Age: 80 Year
  Sex: Female

DRUGS (11)
  1. VITAMIN D2 [Concomitant]
     Active Substance: ERGOCALCIFEROL
  2. CENTRUM [Concomitant]
     Active Substance: VITAMINS
  3. LEVOTHYROXINE. [Concomitant]
     Active Substance: LEVOTHYROXINE
  4. CYMBALTA [Concomitant]
     Active Substance: DULOXETINE HYDROCHLORIDE
  5. IBANDRONIC ACID. [Suspect]
     Active Substance: IBANDRONIC ACID
     Route: 048
     Dates: start: 200803
  6. PREDNISONE. [Concomitant]
     Active Substance: PREDNISONE
  7. CALTRATE [Concomitant]
     Active Substance: CALCIUM CARBONATE
  8. IBANDRONIC ACID. [Suspect]
     Active Substance: IBANDRONIC ACID
     Indication: OSTEOPOROSIS
     Route: 048
     Dates: start: 200709, end: 200711
  9. PREVACID [Concomitant]
     Active Substance: LANSOPRAZOLE
  10. POTASSIUM [Concomitant]
     Active Substance: POTASSIUM
  11. TOPROL XL [Concomitant]
     Active Substance: METOPROLOL SUCCINATE

REACTIONS (3)
  - Diarrhoea [Unknown]
  - Dehydration [Unknown]
  - Vomiting [Unknown]
